FAERS Safety Report 5422338-1 (Version None)
Quarter: 2007Q3

REPORT INFORMATION
  Report Type: 
  Country: None (occurrence: None)
  Receive Date: 20070820
  Receipt Date: 20070611
  Transmission Date: 20080115
  Serious: Yes (Death)
  Sender: FDA-Public Use
  Company Number: US021017

PATIENT

DRUGS (1)
  1. ACTIQ [Suspect]
     Dosage: 200 UG  BUCCAL
     Route: 002

REACTIONS (1)
  - DEATH [None]
